FAERS Safety Report 4899213-4 (Version None)
Quarter: 2006Q1

REPORT INFORMATION
  Report Type: 
  Country: None (occurrence: None)
  Receive Date: 20060131
  Receipt Date: 20060123
  Transmission Date: 20060701
  Serious: Yes (Other)
  Sender: FDA-Public Use
  Company Number: 144329USA

PATIENT
  Age: 46 Year
  Sex: Female

DRUGS (9)
  1. GLATIRAMER ACETATE [Suspect]
     Indication: MULTIPLE SCLEROSIS
     Dosage: 20 MILLIGRAM
     Route: 058
     Dates: start: 20020101
  2. ALERTEC [Concomitant]
  3. CELEBREX [Concomitant]
  4. TOLTERODINE [Concomitant]
  5. VENLAFAXINE HCL [Concomitant]
  6. GABAPENTIN [Concomitant]
  7. OXBUTYNIN [Concomitant]
  8. PAROXETINE HYDROCHLORIDE [Concomitant]
  9. TAMOXIFEN CITRATE [Concomitant]

REACTIONS (6)
  - INJECTION SITE BRUISING [None]
  - INJECTION SITE NECROSIS [None]
  - INJECTION SITE PAIN [None]
  - REFUSAL OF TREATMENT BY PATIENT [None]
  - SKIN NECROSIS [None]
  - WRONG TECHNIQUE IN DRUG USAGE PROCESS [None]
